FAERS Safety Report 9425509 (Version 1)
Quarter: 2013Q3

REPORT INFORMATION
  Report Type: Spontaneous
  Country: US (occurrence: US)
  Receive Date: 20130729
  Receipt Date: 20130729
  Transmission Date: 20140515
  Serious: No
  Sender: FDA-Public Use
  Company Number: US-MYLANLABS-2013S1006905

PATIENT
  Age: 45 Year
  Sex: Female
  Weight: 88 kg

DRUGS (3)
  1. LEVOTHYROXINE SODIUM TABLETS, USP [Suspect]
     Indication: AUTOIMMUNE THYROIDITIS
     Route: 048
     Dates: start: 2011
  2. LEVOTHYROXINE SODIUM TABLETS, USP [Suspect]
     Indication: AUTOIMMUNE THYROIDITIS
     Route: 048
     Dates: start: 2011
  3. LEVOTHYROXINE SODIUM TABLETS, USP [Suspect]
     Indication: AUTOIMMUNE THYROIDITIS
     Dosage: TAKEN ^SPORADICALLY^, PER PATIENT.
     Route: 048
     Dates: start: 201305

REACTIONS (18)
  - Drug ineffective [Not Recovered/Not Resolved]
  - Hypothyroidism [Not Recovered/Not Resolved]
  - Alopecia [Not Recovered/Not Resolved]
  - Weight increased [Not Recovered/Not Resolved]
  - Hypersensitivity [Not Recovered/Not Resolved]
  - Lethargy [Not Recovered/Not Resolved]
  - Fluid retention [Not Recovered/Not Resolved]
  - Dizziness [Not Recovered/Not Resolved]
  - Lymphadenopathy [Not Recovered/Not Resolved]
  - Pharyngeal oedema [Not Recovered/Not Resolved]
  - Depression [Not Recovered/Not Resolved]
  - Weight decreased [Not Recovered/Not Resolved]
  - Feeling of body temperature change [Not Recovered/Not Resolved]
  - Decreased appetite [Not Recovered/Not Resolved]
  - Nervousness [Not Recovered/Not Resolved]
  - Palpitations [Not Recovered/Not Resolved]
  - Urticaria [Not Recovered/Not Resolved]
  - Oedema [Not Recovered/Not Resolved]
